FAERS Safety Report 11857422 (Version 2)
Quarter: 2016Q1

REPORT INFORMATION
  Report Type: Spontaneous
  Country: US (occurrence: US)
  Receive Date: 20151221
  Receipt Date: 20160203
  Transmission Date: 20160526
  Serious: No
  Sender: FDA-Public Use
  Company Number: US-LEO PHARMA-239140

PATIENT
  Sex: Female

DRUGS (3)
  1. PICATO [Suspect]
     Active Substance: INGENOL MEBUTATE
     Indication: ACTINIC KERATOSIS
     Dates: start: 20151208, end: 20151210
  2. PICATO [Suspect]
     Active Substance: INGENOL MEBUTATE
     Indication: ACTINIC KERATOSIS
  3. RANITIDINE [Concomitant]
     Active Substance: RANITIDINE\RANITIDINE HYDROCHLORIDE
     Indication: GASTROOESOPHAGEAL REFLUX DISEASE

REACTIONS (13)
  - Application site scab [Recovered/Resolved]
  - Accidental exposure to product [Unknown]
  - Drug administered at inappropriate site [Unknown]
  - Application site dryness [Recovered/Resolved]
  - Insomnia [Recovered/Resolved]
  - Application site swelling [Recovered/Resolved]
  - Application site pain [Recovered/Resolved]
  - Application site burn [Recovered/Resolved]
  - Lip swelling [Recovered/Resolved]
  - Vision blurred [Recovered/Resolved]
  - Application site reaction [Recovered/Resolved]
  - Application site pruritus [Recovered/Resolved]
  - Inappropriate schedule of drug administration [Unknown]
